FAERS Safety Report 23832583 (Version 1)
Quarter: 2024Q2

REPORT INFORMATION
  Report Type: Spontaneous
  Country: US (occurrence: None)
  Receive Date: 20240508
  Receipt Date: 20240508
  Transmission Date: 20240715
  Serious: Yes (Hospitalization)
  Sender: FDA-Public Use
  Company Number: None

PATIENT
  Age: 39 Year
  Sex: Female
  Weight: 56.25 kg

DRUGS (4)
  1. METHYLPREDNISOLONE [Suspect]
     Active Substance: METHYLPREDNISOLONE
     Indication: Spinal stenosis
     Dosage: OTHER QUANTITY : 21 TABLET(S);?OTHER FREQUENCY : AS INDICATED;?
     Route: 048
     Dates: start: 20240501
  2. FISH OIL [Concomitant]
     Active Substance: FISH OIL
  3. VITAMINS [Concomitant]
     Active Substance: VITAMINS
  4. VITAMIN B12 [Concomitant]
     Active Substance: CYANOCOBALAMIN

REACTIONS (7)
  - Back pain [None]
  - Muscle spasms [None]
  - Dysstasia [None]
  - Gait inability [None]
  - Tinnitus [None]
  - Visual impairment [None]
  - Blood pressure increased [None]

NARRATIVE: CASE EVENT DATE: 20240505
